FAERS Safety Report 8422217-1 (Version None)
Quarter: 2012Q2

REPORT INFORMATION
  Report Type: 
  Country: None (occurrence: None)
  Receive Date: 20120608
  Receipt Date: 20120529
  Transmission Date: 20120825
  Serious: Yes (Death)
  Sender: FDA-Public Use
  Company Number: CA-UCBSA-058479

PATIENT
  Age: 72 Year
  Sex: Male
  Weight: 71 kg

DRUGS (19)
  1. CRESTOR [Concomitant]
     Dosage: FOR 100D
  2. METHOTREXATE [Concomitant]
     Dosage: 50MG/2ML VI 25MG 1X/WEEK FOR 14W
  3. ACETAMINOPHEN [Concomitant]
     Dosage: 500MG TABLET 1-2 TAB TID PRN FOR 100W
  4. CIMZIA [Suspect]
     Dosage: NO OF DOSES RECEIVED: 2
     Route: 058
     Dates: start: 20120502, end: 20120522
  5. TRAZODONE HCL [Concomitant]
     Dosage: FOR 100D
  6. METHOTREXATE [Concomitant]
     Dosage: 08-SEP
  7. ENSURE [Concomitant]
     Dosage: 1 CAN BID, PRN FOR 100D
  8. AGGRENOX [Concomitant]
     Dosage: 1 TAB; FOR 100D
  9. VITAMIN D [Concomitant]
     Dosage: FOR 100D
  10. CALCIUM [Concomitant]
     Route: 048
  11. IMOVANE [Concomitant]
     Dosage: FOR 100D
  12. FLUOXETINE [Concomitant]
     Dosage: FOR 100D
  13. HYDROMORPHONE HCL [Concomitant]
     Dosage: 3MG CAP 2 TAB BID FOR 100D
  14. RAMIPRIL [Concomitant]
     Dosage: 1 TAB FOR 100D
  15. HYDROMORPHONE HCL [Concomitant]
     Dosage: FOR 100D
  16. DILAUDID [Concomitant]
     Dosage: 1 MG TABLET 1-2 TAB Q3H PRN FOR 100D
  17. PANTOPRAZOLE [Concomitant]
     Dosage: FOR 100D
  18. FOLIC ACID [Concomitant]
     Dosage: 5 MG ; 1 TAB 6X/WEEK FOR 14 W DAILY EXC..
     Route: 048
  19. METOPROLOL TARTRATE [Concomitant]
     Dosage: 50 MG STRENGTH, 0.25 TABLETS BID

REACTIONS (1)
  - DEATH [None]
